FAERS Safety Report 9244601 (Version 2)
Quarter: 2013Q2

REPORT INFORMATION
  Report Type: Spontaneous
  Country: CA (occurrence: CA)
  Receive Date: 20130422
  Receipt Date: 20130509
  Transmission Date: 20140414
  Serious: Yes (Life-Threatening, Other)
  Sender: FDA-Public Use
  Company Number: CA-PFIZER INC-2013123601

PATIENT
  Age: 34 Year
  Sex: Female
  Weight: 120 kg

DRUGS (1)
  1. CHAMPIX [Suspect]
     Indication: SMOKING CESSATION THERAPY
     Dosage: 0.5 MG, 2X/DAY
     Route: 048
     Dates: start: 201205, end: 201206

REACTIONS (3)
  - Homicidal ideation [Recovered/Resolved]
  - Emotional disorder [Unknown]
  - Anger [Unknown]
